FAERS Safety Report 11102279 (Version 1)
Quarter: 2015Q2

REPORT INFORMATION
  Report Type: Spontaneous
  Country: US (occurrence: None)
  Receive Date: 20150507
  Receipt Date: 20150507
  Transmission Date: 20150821
  Serious: Yes (Hospitalization)
  Sender: FDA-Public Use
  Company Number: US-H14001-15-00654

PATIENT
  Age: 54 Year
  Sex: Female

DRUGS (2)
  1. TACROLIMUS (TACROLIMUS) (UNKNOWN) (TACROLIMUS) [Suspect]
     Active Substance: TACROLIMUS
     Indication: PRODUCT USED FOR UNKNOWN INDICATION
     Dosage: 2 MG (1 MG, 2 IN 1 D)
     Dates: start: 1994
  2. PREDNISONE (PREDNISONE) (UNKNOWN) (PREDNISONE) [Suspect]
     Active Substance: PREDNISONE
     Indication: PRODUCT USED FOR UNKNOWN INDICATION
     Dates: start: 1994

REACTIONS (11)
  - Neck mass [None]
  - Goitre [None]
  - Tenderness [None]
  - Dyspnoea exertional [None]
  - Escherichia test positive [None]
  - Asthenia [None]
  - Pain [None]
  - Hyperthyroidism [None]
  - Cushingoid [None]
  - Resting tremor [None]
  - Pyrexia [None]
